FAERS Safety Report 13626371 (Version 1)
Quarter: 2017Q2

REPORT INFORMATION
  Report Type: Spontaneous
  Country: US (occurrence: US)
  Receive Date: 20170531
  Receipt Date: 20170531
  Transmission Date: 20170830
  Serious: Yes (Other)
  Sender: FDA-Public Use
  Company Number: US-ASTELLAS-1355215

PATIENT
  Age: 76 Year
  Sex: Female
  Weight: 70.37 kg

DRUGS (15)
  1. FORTEO [Concomitant]
     Active Substance: TERIPARATIDE
     Indication: COMPRESSION FRACTURE
     Route: 058
  2. VITAMIN D3 [Concomitant]
     Active Substance: CHOLECALCIFEROL
  3. RETIN-A [Concomitant]
     Active Substance: TRETINOIN
     Dosage: CREAM.
     Route: 065
  4. TARCEVA [Suspect]
     Active Substance: ERLOTINIB HYDROCHLORIDE
     Route: 048
     Dates: start: 20120127
  5. XANAX [Concomitant]
     Active Substance: ALPRAZOLAM
     Dosage: AT NIGHT
     Route: 065
  6. VITAMIN C [Concomitant]
     Active Substance: ASCORBIC ACID
  7. WARFARIN [Concomitant]
     Active Substance: WARFARIN
     Route: 065
  8. TARCEVA [Suspect]
     Active Substance: ERLOTINIB HYDROCHLORIDE
     Indication: LUNG NEOPLASM MALIGNANT
     Route: 048
     Dates: start: 201101
  9. LEVAQUIN [Suspect]
     Active Substance: LEVOFLOXACIN
     Indication: PRODUCT USED FOR UNKNOWN INDICATION
     Route: 065
  10. PRILOSEC [Concomitant]
     Active Substance: OMEPRAZOLE MAGNESIUM
  11. COUMADIN [Concomitant]
     Active Substance: WARFARIN SODIUM
     Indication: DEEP VEIN THROMBOSIS
  12. ASPIRIN. [Concomitant]
     Active Substance: ASPIRIN
     Route: 065
  13. BENZOYL PEROXIDE GEL [Concomitant]
  14. PREDNISONE. [Concomitant]
     Active Substance: PREDNISONE
  15. CRESTOR [Concomitant]
     Active Substance: ROSUVASTATIN CALCIUM
     Route: 065

REACTIONS (14)
  - Cough [Unknown]
  - Dermatitis acneiform [Recovered/Resolved]
  - Fatigue [Recovered/Resolved]
  - Rash [Not Recovered/Not Resolved]
  - Pain of skin [Unknown]
  - Thrombosis [Unknown]
  - Decreased appetite [Recovered/Resolved]
  - Onychalgia [Unknown]
  - Rash [Unknown]
  - Dermatitis acneiform [Not Recovered/Not Resolved]
  - Bronchitis [Unknown]
  - Rash pruritic [Not Recovered/Not Resolved]
  - Rash [Not Recovered/Not Resolved]
  - Dyspnoea [Recovered/Resolved]

NARRATIVE: CASE EVENT DATE: 201404
